FAERS Safety Report 10178591 (Version 1)
Quarter: 2014Q2

REPORT INFORMATION
  Report Type: Spontaneous
  Country: US (occurrence: None)
  Receive Date: 20140516
  Receipt Date: 20140516
  Transmission Date: 20141212
  Serious: No
  Sender: FDA-Public Use
  Company Number: None

PATIENT
  Age: 38 Year
  Sex: Female
  Weight: 63.5 kg

DRUGS (1)
  1. MIRVASO [Suspect]
     Indication: ROSACEA
     Dosage: PEA SIZED, ONCE DAILY, APPLIED TO A SURFACE USUALLY THE SKIN
     Dates: start: 20140130, end: 20140422

REACTIONS (2)
  - Acne [None]
  - Skin discolouration [None]
